FAERS Safety Report 18373771 (Version 3)
Quarter: 2020Q4

REPORT INFORMATION
  Report Type: Report from Study
  Country: FR (occurrence: FR)
  Receive Date: 20201012
  Receipt Date: 20201210
  Transmission Date: 20210114
  Serious: Yes (Life-Threatening, Hospitalization)
  Sender: FDA-Public Use
  Company Number: FR-PFIZER INC-2020332647

PATIENT
  Age: 7 Year
  Sex: Female
  Weight: 16.6 kg

DRUGS (23)
  1. TOPOTECAN HYDROCHLORIDE. [Suspect]
     Active Substance: TOPOTECAN HYDROCHLORIDE
     Indication: NEOPLASM MALIGNANT
     Dosage: 0.75 MG/M2, 1X/DAY
     Route: 042
     Dates: start: 20200708, end: 20200712
  2. CYCLOPHOSPHAMIDE. [Suspect]
     Active Substance: CYCLOPHOSPHAMIDE
     Dosage: 250 MG/M2, 1X/DAY
     Route: 042
     Dates: start: 20200730, end: 20200803
  3. VENETOCLAX. [Suspect]
     Active Substance: VENETOCLAX
     Dosage: 250 MG, 1X/DAY (TABLET FOR ORAL SUSPENSION)
     Route: 048
     Dates: start: 20200730, end: 20200808
  4. INNOHEP [Concomitant]
     Active Substance: TINZAPARIN SODIUM
     Indication: ANTICOAGULANT THERAPY
     Dosage: 3000 IU, 1X/DAY,  (1 IN 1 D)
     Route: 058
     Dates: start: 20200718, end: 20200718
  5. INNOHEP [Concomitant]
     Active Substance: TINZAPARIN SODIUM
     Dosage: UNK
     Route: 042
  6. VENETOCLAX. [Suspect]
     Active Substance: VENETOCLAX
     Dosage: 250 MG, 1X/DAY
     Route: 048
     Dates: start: 20200824, end: 20200902
  7. INNOHEP [Concomitant]
     Active Substance: TINZAPARIN SODIUM
     Dosage: UNK
  8. ALLOPURINOL. [Concomitant]
     Active Substance: ALLOPURINOL
     Indication: PROPHYLAXIS
     Dosage: 100 MG, 1X/DAY, (1 IN 1 D)
     Route: 042
     Dates: start: 20200708, end: 20200713
  9. ELECTROLYTES NOS [Concomitant]
     Active Substance: ELECTROLYTES NOS
     Indication: PROPHYLAXIS
     Dosage: UNK
     Route: 042
     Dates: start: 20200706, end: 20200713
  10. INNOHEP [Concomitant]
     Active Substance: TINZAPARIN SODIUM
     Dosage: UNK
     Route: 058
  11. TOPOTECAN HYDROCHLORIDE. [Suspect]
     Active Substance: TOPOTECAN HYDROCHLORIDE
     Dosage: 0.75 MG/M2, 1X/DAY
     Route: 042
     Dates: start: 20200730, end: 20200803
  12. CYCLOPHOSPHAMIDE. [Suspect]
     Active Substance: CYCLOPHOSPHAMIDE
     Indication: NEOPLASM MALIGNANT
     Dosage: 250 MG/M2, 1X/DAY
     Route: 042
     Dates: start: 20200708, end: 20200712
  13. VENETOCLAX. [Suspect]
     Active Substance: VENETOCLAX
     Dosage: 120 MG, 1X/DAY, (120 MG 1 IN 1 D (TABLET FOR ORAL SUSPENSION) )
     Route: 048
     Dates: start: 20200706, end: 20200706
  14. VENETOCLAX. [Suspect]
     Active Substance: VENETOCLAX
     Dosage: 250 MG, 1X/DAY
     Route: 048
     Dates: start: 20200707, end: 20200712
  15. INNOHEP [Concomitant]
     Active Substance: TINZAPARIN SODIUM
     Dosage: 3000 IU, 1X/ (3000 IU, QD (1 IN 1 D) )
     Route: 058
     Dates: start: 20200706, end: 20200713
  16. INNOHEP [Concomitant]
     Active Substance: TINZAPARIN SODIUM
     Dosage: 3000 IU, 1X/DAY (3000 IU, QD (1 IN 1 D)
     Route: 058
     Dates: start: 20200717
  17. TOPOTECAN HYDROCHLORIDE. [Suspect]
     Active Substance: TOPOTECAN HYDROCHLORIDE
     Dosage: 250 MG/M2, 1X/DAY
     Route: 042
     Dates: start: 20200708
  18. CYCLOPHOSPHAMIDE. [Suspect]
     Active Substance: CYCLOPHOSPHAMIDE
     Dosage: 0.75 MG/M2, 1X/DAY
     Route: 042
     Dates: start: 20200708
  19. VENETOCLAX. [Suspect]
     Active Substance: VENETOCLAX
     Dosage: 250 MG, 1X/DAY
     Route: 048
     Dates: start: 20200713, end: 20200715
  20. VENETOCLAX. [Suspect]
     Active Substance: VENETOCLAX
     Dosage: 250 MG, 1X/DAY
     Route: 048
     Dates: start: 20201007
  21. VENETOCLAX. [Suspect]
     Active Substance: VENETOCLAX
     Indication: NEOPLASM MALIGNANT
     Dosage: 250 MG, 1X/DAY, (250 MG 1 IN 1 D (TABLET FOR ORAL SUSPENSION))
     Route: 048
     Dates: start: 20200707, end: 20200715
  22. VENETOCLAX. [Suspect]
     Active Substance: VENETOCLAX
     Dosage: 250 MG, 1X/DAY
     Route: 048
     Dates: start: 20200914, end: 20200923
  23. SPASFON LYOC [Concomitant]
     Active Substance: PHLOROGLUCINOL
     Indication: ABDOMINAL PAIN
     Dosage: 160 MG, 1X/DAY (80 MG, TWICE A DAY)
     Route: 048
     Dates: start: 20200828

REACTIONS (7)
  - Pyrexia [Not Recovered/Not Resolved]
  - Lymphocyte count decreased [Recovered/Resolved]
  - Febrile neutropenia [Recovered/Resolved]
  - Febrile neutropenia [Recovered/Resolved]
  - Febrile bone marrow aplasia [Recovered/Resolved]
  - Lymphopenia [Unknown]
  - Febrile neutropenia [Recovered/Resolved]

NARRATIVE: CASE EVENT DATE: 20200718
